FAERS Safety Report 7669109-3 (Version None)
Quarter: 2011Q3

REPORT INFORMATION
  Report Type: 
  Country: None (occurrence: None)
  Receive Date: 20110808
  Receipt Date: 20110728
  Transmission Date: 20111222
  Serious: Yes (Disabling, Other)
  Sender: FDA-Public Use
  Company Number: US-ROCHE-552204

PATIENT
  Sex: Male
  Weight: 95.3 kg

DRUGS (2)
  1. ACCUTANE [Suspect]
     Route: 048
     Dates: start: 20010116, end: 20010701
  2. ACCUTANE [Suspect]
     Route: 048
     Dates: start: 20001227, end: 20010116

REACTIONS (7)
  - CROHN'S DISEASE [None]
  - INFLAMMATORY BOWEL DISEASE [None]
  - DEPRESSION [None]
  - ANXIETY [None]
  - DRY SKIN [None]
  - MULTIPLE SCLEROSIS [None]
  - SUICIDAL IDEATION [None]
